FAERS Safety Report 17737195 (Version 1)
Quarter: 2020Q2

REPORT INFORMATION
  Report Type: Spontaneous
  Country: FR (occurrence: FR)
  Receive Date: 20200502
  Receipt Date: 20200502
  Transmission Date: 20200714
  Serious: Yes (Other)
  Sender: FDA-Public Use
  Company Number: FR-TEVA-2020-FR-1229429

PATIENT
  Age: 48 Year
  Sex: Male
  Weight: 124.8 kg

DRUGS (46)
  1. OMEPRAZOLE. [Suspect]
     Active Substance: OMEPRAZOLE
     Indication: GASTROOESOPHAGEAL REFLUX DISEASE
     Dosage: 20 MILLIGRAM DAILY; 20 MG, DAILY
     Dates: start: 20050620, end: 20051020
  2. PREVACID [Suspect]
     Active Substance: LANSOPRAZOLE
     Dates: start: 199601, end: 201608
  3. PREVACID 24 HR [Suspect]
     Active Substance: LANSOPRAZOLE
     Indication: GASTROOESOPHAGEAL REFLUX DISEASE
  4. DICLOFENAC [Concomitant]
     Active Substance: DICLOFENAC
     Indication: DISCOMFORT
     Dates: start: 20050527, end: 20061215
  5. PANTOPRAZOLE [Suspect]
     Active Substance: PANTOPRAZOLE
     Indication: GASTROOESOPHAGEAL REFLUX DISEASE
     Dosage: 40 MILLIGRAM DAILY; 40 MG, DAILY
     Dates: start: 20051020, end: 20051229
  6. PRILOSEC OTC [Suspect]
     Active Substance: OMEPRAZOLE MAGNESIUM
     Indication: GASTROINTESTINAL DISORDER
     Dosage: ROUTE OF ADMINISTRATION : ORAL .
     Route: 048
     Dates: start: 199601, end: 201608
  7. NEXIUM 24HR [Suspect]
     Active Substance: ESOMEPRAZOLE MAGNESIUM
     Indication: GASTROINTESTINAL DISORDER
     Dosage: ROUTE OF ADMINISTRATION : ORAL .
     Route: 048
     Dates: start: 199601, end: 201608
  8. GLIPIZIDE. [Concomitant]
     Active Substance: GLIPIZIDE
  9. LISINOPRIL. [Concomitant]
     Active Substance: LISINOPRIL
  10. AMLODIPINE [Concomitant]
     Active Substance: AMLODIPINE BESYLATE
  11. CIPROFLOXACIN. [Concomitant]
     Active Substance: CIPROFLOXACIN
  12. ALPRAZOLAM. [Concomitant]
     Active Substance: ALPRAZOLAM
  13. RANITIDINE. [Concomitant]
     Active Substance: RANITIDINE
     Dates: start: 20001002
  14. IRBESARTAN. [Concomitant]
     Active Substance: IRBESARTAN
  15. PRILOSEC [Suspect]
     Active Substance: OMEPRAZOLE MAGNESIUM
     Indication: GASTROOESOPHAGEAL REFLUX DISEASE
  16. PROTONIX [Suspect]
     Active Substance: PANTOPRAZOLE SODIUM
     Indication: GASTROINTESTINAL DISORDER
  17. ASPIRIN. [Concomitant]
     Active Substance: ASPIRIN
  18. GABAPENTIN. [Concomitant]
     Active Substance: GABAPENTIN
  19. CYANOCOBALAMIN. [Concomitant]
     Active Substance: CYANOCOBALAMIN
  20. PROTONIX [Suspect]
     Active Substance: PANTOPRAZOLE SODIUM
     Indication: GASTROOESOPHAGEAL REFLUX DISEASE
  21. NEXIUM [Suspect]
     Active Substance: ESOMEPRAZOLE MAGNESIUM
     Indication: GASTROINTESTINAL DISORDER
     Dosage: ROUTE OF ADMINISTRATION : ORAL .
     Route: 048
     Dates: start: 199601, end: 201608
  22. DEXILANT [Suspect]
     Active Substance: DEXLANSOPRAZOLE
     Indication: GASTROINTESTINAL DISORDER
     Route: 048
     Dates: start: 199601, end: 201608
  23. AZITHROMYCIN ANHYDROUS. [Concomitant]
     Active Substance: AZITHROMYCIN ANHYDROUS
  24. ONDANSETRON [Concomitant]
     Active Substance: ONDANSETRON
  25. FLUCONAZOLE. [Concomitant]
     Active Substance: FLUCONAZOLE
  26. PREVACID [Suspect]
     Active Substance: LANSOPRAZOLE
     Indication: GASTROOESOPHAGEAL REFLUX DISEASE
     Dosage: 30 MILLIGRAM DAILY; 30 MG, DAILY
     Dates: start: 20100101, end: 20160701
  27. PREVACID 24 HR [Suspect]
     Active Substance: LANSOPRAZOLE
     Indication: GASTROOESOPHAGEAL REFLUX DISEASE
     Dates: start: 199601, end: 201608
  28. PRILOSEC [Suspect]
     Active Substance: OMEPRAZOLE MAGNESIUM
     Indication: GASTROINTESTINAL DISORDER
  29. GEMFIBROZIL. [Concomitant]
     Active Substance: GEMFIBROZIL
  30. METOPROLOL TARTRATE. [Concomitant]
     Active Substance: METOPROLOL TARTRATE
  31. CHOLESTYRAMINE. [Concomitant]
     Active Substance: CHOLESTYRAMINE
  32. HYDROCHLOROTHIAZIDE. [Concomitant]
     Active Substance: HYDROCHLOROTHIAZIDE
     Indication: BLOOD PRESSURE ABNORMAL
  33. HYDROCODONE [Concomitant]
     Active Substance: HYDROCODONE
  34. INSULIN [Concomitant]
     Active Substance: INSULIN NOS
     Indication: DISCOMFORT
     Dates: start: 20050527, end: 20061215
  35. PRILOSEC [Suspect]
     Active Substance: OMEPRAZOLE MAGNESIUM
     Indication: GASTROOESOPHAGEAL REFLUX DISEASE
     Dosage: ROUTE OF ADMINISTRATION : ORAL .
     Route: 048
     Dates: start: 199601, end: 201608
  36. PROTONIX [Suspect]
     Active Substance: PANTOPRAZOLE SODIUM
     Indication: GASTROOESOPHAGEAL REFLUX DISEASE
     Route: 048
     Dates: start: 199601, end: 201608
  37. FUROSEMIDE. [Concomitant]
     Active Substance: FUROSEMIDE
  38. FLUNISOLIDE. [Concomitant]
     Active Substance: FLUNISOLIDE
  39. PREVACID 24 HR [Suspect]
     Active Substance: LANSOPRAZOLE
     Indication: GASTROOESOPHAGEAL REFLUX DISEASE
     Dosage: 30 MILLIGRAM DAILY; 30 MG, DAILY
     Dates: start: 20090601, end: 20160701
  40. METFORMIN [Concomitant]
     Active Substance: METFORMIN HYDROCHLORIDE
  41. PRAVASTATIN. [Concomitant]
     Active Substance: PRAVASTATIN
  42. CEPHALEXIN. [Concomitant]
     Active Substance: CEPHALEXIN
  43. CLONAZEPAM. [Concomitant]
     Active Substance: CLONAZEPAM
  44. HYDROCODONE-APAP [Concomitant]
     Active Substance: ACETAMINOPHEN\HYDROCODONE
  45. AMITRIPTYLINE [Concomitant]
     Active Substance: AMITRIPTYLINE
  46. LANTUS [Concomitant]
     Active Substance: INSULIN GLARGINE

REACTIONS (6)
  - Tubulointerstitial nephritis [Unknown]
  - Dyspepsia [Unknown]
  - Acute kidney injury [Not Recovered/Not Resolved]
  - End stage renal disease [Unknown]
  - Renal injury [Unknown]
  - Chronic kidney disease [Not Recovered/Not Resolved]

NARRATIVE: CASE EVENT DATE: 2006
